FAERS Safety Report 14101718 (Version 1)
Quarter: 2017Q4

REPORT INFORMATION
  Report Type: Other
  Country: HU (occurrence: HU)
  Receive Date: 20171018
  Receipt Date: 20171018
  Transmission Date: 20180321
  Serious: Yes (Life-Threatening)
  Sender: FDA-Public Use
  Company Number: HU-FRESENIUS KABI-FK201708743

PATIENT
  Age: 49 Year
  Sex: Female

DRUGS (3)
  1. METOPROLOL INJECTION (MANUFACTURER UNKNOWN) [Suspect]
     Active Substance: METOPROLOL
     Indication: PRODUCT USED FOR UNKNOWN INDICATION
     Route: 065
  2. INSULIN [Suspect]
     Active Substance: INSULIN NOS
     Indication: PRODUCT USED FOR UNKNOWN INDICATION
     Route: 065
  3. CLONAZEPAM. [Suspect]
     Active Substance: CLONAZEPAM
     Indication: PRODUCT USED FOR UNKNOWN INDICATION
     Route: 065

REACTIONS (8)
  - Intensive care unit acquired weakness [Unknown]
  - Hypoxia [Recovered/Resolved]
  - Hypotension [Recovered/Resolved]
  - Suicide attempt [Recovered/Resolved]
  - Pulmonary sepsis [Unknown]
  - Intentional overdose [Recovered/Resolved]
  - Malnutrition [Unknown]
  - Tracheo-oesophageal fistula [Recovered/Resolved]

NARRATIVE: CASE EVENT DATE: 2014
